FAERS Safety Report 14233578 (Version 4)
Quarter: 2018Q1

REPORT INFORMATION
  Report Type: Report from Study
  Country: None (occurrence: RO)
  Receive Date: 20171128
  Receipt Date: 20180329
  Transmission Date: 20180508
  Serious: Yes (Hospitalization)
  Sender: FDA-Public Use
  Company Number: RO-ABBVIE-17S-135-2174034-00

PATIENT
  Age: 82 Year
  Sex: Male

DRUGS (6)
  1. PIRACETAM [Concomitant]
     Active Substance: PIRACETAM
     Indication: CARDIOVASCULAR DISORDER
     Dates: end: 201711
  2. VIEKIRAX [Suspect]
     Active Substance: OMBITASVIR\PARITAPREVIR\RITONAVIR
     Indication: HEPATITIS C
     Route: 048
     Dates: start: 20171016, end: 20180107
  3. EXVIERA [Suspect]
     Active Substance: DASABUVIR
     Indication: HEPATITIS C
     Route: 048
     Dates: start: 20171016, end: 20180107
  4. NITROPECTOR [Concomitant]
     Indication: CARDIOVASCULAR DISORDER
     Route: 048
  5. EXVIERA [Suspect]
     Active Substance: DASABUVIR
     Indication: HEPATIC CIRRHOSIS
  6. VIEKIRAX [Suspect]
     Active Substance: OMBITASVIR\PARITAPREVIR\RITONAVIR
     Indication: HEPATIC CIRRHOSIS

REACTIONS (8)
  - Hypercholesterolaemia [Recovering/Resolving]
  - Decreased appetite [Not Recovered/Not Resolved]
  - Bronchitis [Recovering/Resolving]
  - Hemiparesis [Not Recovered/Not Resolved]
  - Asthenia [Not Recovered/Not Resolved]
  - Aphasia [Not Recovered/Not Resolved]
  - Decubitus ulcer [Not Recovered/Not Resolved]
  - Cerebrovascular accident [Recovered/Resolved with Sequelae]

NARRATIVE: CASE EVENT DATE: 20171111
